FAERS Safety Report 13175927 (Version 3)
Quarter: 2017Q1

REPORT INFORMATION
  Report Type: Other
  Country: NL (occurrence: NL)
  Receive Date: 20170201
  Receipt Date: 20170322
  Transmission Date: 20170428
  Serious: Yes (Life-Threatening)
  Sender: FDA-Public Use
  Company Number: NL-CELLTRION INC.-2017NL000879

PATIENT

DRUGS (5)
  1. REMSIMA [Suspect]
     Active Substance: INFLIXIMAB
     Indication: CROHN^S DISEASE
     Dosage: 4 MG/KG EVERY EIGHT WEEKS
     Route: 042
     Dates: start: 20150716, end: 20150716
  2. PURINETHOL [Concomitant]
     Active Substance: MERCAPTOPURINE
     Indication: BLOOD COPPER
     Dosage: UNK
     Dates: start: 20140120
  3. REMSIMA [Suspect]
     Active Substance: INFLIXIMAB
     Dosage: 4 MG/KG EVERY EIGHT WEEKS
     Route: 042
     Dates: start: 20150911, end: 20150911
  4. REMSIMA [Suspect]
     Active Substance: INFLIXIMAB
     Dosage: 4 MG/KG EVERY EIGHT WEEKS
     Route: 042
     Dates: start: 20151106, end: 20151106
  5. LOPERAMIDE [Concomitant]
     Active Substance: LOPERAMIDE
     Indication: INFLAMMATORY BOWEL DISEASE
     Dosage: UNK
     Dates: start: 20141028

REACTIONS (2)
  - Haemolytic anaemia [Recovered/Resolved]
  - Incorrect dose administered [Unknown]

NARRATIVE: CASE EVENT DATE: 20160112
